FAERS Safety Report 5339847-6 (Version None)
Quarter: 2007Q2

REPORT INFORMATION
  Report Type: 
  Country: None (occurrence: None)
  Receive Date: 20070529
  Receipt Date: 20070516
  Transmission Date: 20071010
  Serious: Yes (Hospitalization)
  Sender: FDA-Public Use
  Company Number: 163-21880-07041515

PATIENT
  Age: 72 Year
  Sex: Male

DRUGS (2)
  1. REVLIMID [Suspect]
     Indication: MULTIPLE MYELOMA
     Dosage: 10 MG, 1 IN 1 D; 25-5MG, DAILY, ORAL
     Route: 048
     Dates: start: 20070228, end: 20070401
  2. REVLIMID [Suspect]
     Indication: MULTIPLE MYELOMA
     Dosage: 10 MG, 1 IN 1 D; 25-5MG, DAILY, ORAL
     Route: 048
     Dates: start: 20070401

REACTIONS (5)
  - ANAEMIA [None]
  - BLOOD CALCIUM INCREASED [None]
  - BLOOD GLUCOSE DECREASED [None]
  - DISEASE PROGRESSION [None]
  - DRUG INEFFECTIVE [None]
